FAERS Safety Report 8317901-4 (Version None)
Quarter: 2012Q2

REPORT INFORMATION
  Report Type: 
  Country: None (occurrence: None)
  Receive Date: 20120427
  Receipt Date: 20120421
  Transmission Date: 20120825
  Serious: Yes (Hospitalization, Other)
  Sender: FDA-Public Use
  Company Number: US-BAYER-2011-062565

PATIENT
  Age: 29 Year
  Sex: Female
  Weight: 66.213 kg

DRUGS (25)
  1. YASMIN [Suspect]
     Indication: PREMENSTRUAL SYNDROME
  2. DROSPIRENONE AND ETHINYL ESTRADIOL [Suspect]
     Indication: CONTRACEPTION
     Dosage: UNK
     Dates: start: 20090201, end: 20090701
  3. PANTOPRAZOLE [Concomitant]
     Indication: COLITIS ULCERATIVE
     Dosage: UNK
     Dates: start: 20090613, end: 20090626
  4. METHSCOPOLAMINE BROMIDE [Concomitant]
     Indication: COLITIS ULCERATIVE
     Dosage: UNK
     Dates: start: 20090614, end: 20090626
  5. DROSPIRENONE AND ETHINYL ESTRADIOL [Suspect]
     Indication: PREMENSTRUAL SYNDROME
  6. PROPOXYPHENE HYDROCHLORIDE [Concomitant]
     Indication: MIGRAINE
     Dosage: UNK
     Dates: start: 20090617, end: 20090626
  7. DILANTIN [Concomitant]
     Route: 042
  8. YASMIN [Suspect]
     Indication: CONTRACEPTION
     Dosage: UNK
     Dates: start: 20020901, end: 20090201
  9. MERCAPTOPURINE [Concomitant]
     Indication: COLITIS ULCERATIVE
     Dosage: UNK
     Dates: start: 20090601, end: 20100401
  10. XIFAXAN [Concomitant]
     Indication: COLITIS ULCERATIVE
     Dosage: UNK
     Dates: start: 20090606, end: 20090626
  11. PAMINE [Concomitant]
     Indication: COLITIS ULCERATIVE
     Dosage: UNK
     Dates: start: 20090614, end: 20090626
  12. BUTALBITAL ACETAMINOPHEN AND CAFFEINE [Concomitant]
     Indication: MIGRAINE
     Dosage: UNK
     Dates: start: 20090617, end: 20090626
  13. CEFUROXIME [Concomitant]
     Dosage: UNK
     Dates: start: 20090301
  14. PREDNISONE [Concomitant]
     Indication: COLITIS ULCERATIVE
     Dosage: UNK
     Dates: start: 20090101, end: 20100901
  15. TRIAMTERENE AND HYDROCHLOROTHIAZIDE [Concomitant]
     Indication: WEIGHT LOSS DIET
     Dosage: UNK
     Dates: start: 20071201, end: 20090301
  16. HYOSCYAMINE SULFATE [Concomitant]
     Indication: COLITIS ULCERATIVE
     Dosage: UNK
     Dates: start: 20090606, end: 20090626
  17. WELLBUTRIN [Concomitant]
     Indication: DEPRESSION
     Dosage: UNK
     Dates: start: 20050801
  18. FOLIC ACID [Concomitant]
     Indication: COLITIS ULCERATIVE
     Dosage: UNK
     Dates: start: 20090601, end: 20101201
  19. PREDNISONE [Concomitant]
     Indication: CEREBROVASCULAR ACCIDENT
  20. ASACOL [Concomitant]
     Indication: COLITIS ULCERATIVE
     Dosage: UNK
     Dates: start: 20090101
  21. METRONIDAZOLE [Concomitant]
     Indication: COLITIS ULCERATIVE
     Dosage: UNK
     Dates: start: 20090613, end: 20090626
  22. MESALAMINE [Concomitant]
  23. ACIDOPHILUS [Concomitant]
     Dosage: UNK
     Dates: start: 20090606, end: 20090626
  24. MULTI-VITAMIN [Concomitant]
     Dosage: UNK
     Dates: start: 20090606, end: 20090626
  25. BUPROPION HYDROCHLORIDE [Concomitant]
     Indication: DEPRESSION
     Dosage: UNK
     Dates: start: 20050801

REACTIONS (8)
  - INTRACRANIAL VENOUS SINUS THROMBOSIS [None]
  - JUGULAR VEIN THROMBOSIS [None]
  - CONVULSION [None]
  - INJURY [None]
  - EMOTIONAL DISTRESS [None]
  - MENTAL DISORDER [None]
  - HAEMORRHAGE INTRACRANIAL [None]
  - PAIN [None]
